FAERS Safety Report 8883938 (Version 1)
Quarter: 2012Q4

REPORT INFORMATION
  Report Type: Report from Study
  Country: BR (occurrence: BR)
  Receive Date: 20121102
  Receipt Date: 20121102
  Transmission Date: 20130627
  Serious: Yes (Other)
  Sender: FDA-Public Use
  Company Number: BR-ROCHE-1151722

PATIENT
  Age: 71 Year
  Sex: Female
  Weight: 53 kg

DRUGS (5)
  1. BEVACIZUMAB [Suspect]
     Indication: COLORECTAL CANCER
     Dosage: Patient received 18 infusions
     Route: 042
     Dates: start: 20111220, end: 20121008
  2. OXALIPLATIN [Suspect]
     Indication: COLORECTAL CANCER
     Dosage: Patient received 18 cycles with time length of 2 weeks
     Route: 042
     Dates: start: 20111220, end: 20121008
  3. FLUOROURACIL [Suspect]
     Indication: COLORECTAL CANCER
     Dosage: Patient received 18 cycles with time length of 2 weeks
     Route: 042
     Dates: start: 20110120, end: 20121008
  4. FLUOROURACIL [Suspect]
     Dosage: Patient received 18 cycles with time length of 2 weeks
     Route: 042
     Dates: start: 20110120, end: 20121008
  5. CALCIUM FOLINATE [Suspect]
     Indication: COLORECTAL CANCER
     Route: 042
     Dates: start: 20110120, end: 20121008

REACTIONS (1)
  - Disease progression [Unknown]
